FAERS Safety Report 8827656 (Version 1)
Quarter: 2012Q4

REPORT INFORMATION
  Report Type: 
  Country: US (occurrence: US)
  Receive Date: 20121008
  Receipt Date: 20121008
  Transmission Date: 20130627
  Serious: No
  Sender: FDA-Public Use
  Company Number: US-PFIZER INC-2012247698

PATIENT
  Age: 66 Year
  Sex: Male
  Weight: 81.6 kg

DRUGS (4)
  1. LYRICA [Suspect]
     Indication: NEUROPATHY PERIPHERAL
     Dosage: one capsule of 150 mg in morning and two capsules of 150 mg in evening
     Route: 048
  2. LYRICA [Suspect]
     Indication: SPINAL COLUMN STENOSIS
  3. CYMBALTA [Suspect]
     Indication: NEURALGIA
     Dosage: 20 mg, 1x/day
     Dates: start: 2012
  4. LISINOPRIL [Concomitant]
     Indication: HYPERTENSION
     Dosage: UNK, daily

REACTIONS (2)
  - Hyperhidrosis [Not Recovered/Not Resolved]
  - Swelling face [Unknown]
